FAERS Safety Report 9528941 (Version 2)
Quarter: 2013Q4

REPORT INFORMATION
  Report Type: Spontaneous
  Country: FI (occurrence: FI)
  Receive Date: 20130917
  Receipt Date: 20131213
  Transmission Date: 20140711
  Serious: Yes (Hospitalization, Other)
  Sender: FDA-Public Use
  Company Number: FI-ELI_LILLY_AND_COMPANY-FI201309002141

PATIENT
  Age: 38 Year
  Sex: Male

DRUGS (4)
  1. ZYPADHERA [Suspect]
     Indication: SCHIZOPHRENIA
     Dosage: 405 MG, UNK
     Route: 030
     Dates: start: 2011
  2. ZYPADHERA [Suspect]
     Dosage: 300 MG, 2/M
     Route: 030
     Dates: start: 20121015, end: 20121118
  3. ZYPADHERA [Suspect]
     Dosage: 405 MG, 2/M
     Route: 030
     Dates: start: 20121119
  4. SEROQUEL XR [Concomitant]

REACTIONS (10)
  - Asthenopia [Recovered/Resolved]
  - Restlessness [Recovered/Resolved]
  - Thinking abnormal [Recovered/Resolved]
  - Confusional state [Recovered/Resolved]
  - Dysarthria [Recovered/Resolved]
  - Fatigue [Recovered/Resolved]
  - Hallucination, auditory [Not Recovered/Not Resolved]
  - Off label use [Unknown]
  - Prescribed overdose [Unknown]
  - Drug ineffective [Not Recovered/Not Resolved]
